FAERS Safety Report 8257825-4 (Version None)
Quarter: 2012Q2

REPORT INFORMATION
  Report Type: 
  Country: None (occurrence: None)
  Receive Date: 20120404
  Receipt Date: 20080815
  Transmission Date: 20120825
  Serious: No
  Sender: FDA-Public Use
  Company Number: 2008BI020946

PATIENT
  Age: 39 Year
  Sex: Male

DRUGS (3)
  1. AVONEX [Suspect]
     Indication: MULTIPLE SCLEROSIS
     Route: 030
     Dates: start: 20080724
  2. AVONEX [Suspect]
     Route: 030
     Dates: start: 20080701
  3. AVONEX [Suspect]
     Route: 030
     Dates: start: 20080801

REACTIONS (1)
  - GOUT [None]
